FAERS Safety Report 5679674-3 (Version None)
Quarter: 2008Q1

REPORT INFORMATION
  Report Type: 
  Country: None (occurrence: None)
  Receive Date: 20080320
  Receipt Date: 20080312
  Transmission Date: 20080703
  Serious: Yes (Disabling)
  Sender: FDA-Public Use
  Company Number: 220001M08SWE

PATIENT
  Age: 13 Year
  Sex: Male
  Weight: 33 kg

DRUGS (5)
  1. SAIZEN [Suspect]
     Dosage: 1.16 MG, 1 IN 1 DAYS, SUBCUTANEOUS;  1.05 MG, SUBCUTANEOUS
     Route: 058
     Dates: start: 20000615
  2. SAIZEN [Suspect]
     Dosage: 1.16 MG, 1 IN 1 DAYS, SUBCUTANEOUS;  1.05 MG, SUBCUTANEOUS
     Route: 058
     Dates: start: 20050626
  3. LEVOTHYROXINE SODIUM [Concomitant]
  4. HYDROCORTISONE [Concomitant]
  5. DESMOPRESSIN ACETATE [Concomitant]

REACTIONS (2)
  - DISEASE RECURRENCE [None]
  - LANGERHANS' CELL GRANULOMATOSIS [None]
